FAERS Safety Report 9746362 (Version 2)
Quarter: 2013Q4

REPORT INFORMATION
  Report Type: Spontaneous
  Country: JP (occurrence: None)
  Receive Date: 20131205
  Receipt Date: 20131226
  Transmission Date: 20140711
  Serious: Yes (Hospitalization)
  Sender: FDA-Public Use
  Company Number: LOSA20130011

PATIENT
  Age: 50 Year
  Sex: Female
  Weight: 65 kg

DRUGS (4)
  1. LOSARTAN POTASSIUM [Suspect]
     Indication: HYPERTENSION
     Dosage: 50 MG, 1 IN 1 D, ORAL
     Route: 048
     Dates: start: 200403, end: 2009
  2. TRICHLORMETHIAZIDE [Concomitant]
  3. FLUVOXAMINE [Concomitant]
  4. ROSUVASTATIN (ROSUVASTATIN) (UNKNOWN) (ROSUVASTATIN) [Concomitant]

REACTIONS (5)
  - Drug-induced liver injury [None]
  - Dermatomyositis [None]
  - Lymphocyte stimulation test positive [None]
  - Hepatic steatosis [None]
  - Hepatic atrophy [None]
